FAERS Safety Report 20167187 (Version 1)
Quarter: 2021Q4

REPORT INFORMATION
  Report Type: Spontaneous
  Country: US (occurrence: None)
  Receive Date: 20211208
  Receipt Date: 20211208
  Transmission Date: 20220303
  Serious: No
  Sender: FDA-Public Use
  Company Number: None

PATIENT

DRUGS (2)
  1. METOPROLOL [Suspect]
     Active Substance: METOPROLOL
  2. DEPAKOTE [Suspect]
     Active Substance: DIVALPROEX SODIUM

REACTIONS (2)
  - Hypoaesthesia [None]
  - Asthma [None]
